FAERS Safety Report 6135749-6 (Version None)
Quarter: 2009Q1

REPORT INFORMATION
  Report Type: 
  Country: None (occurrence: None)
  Receive Date: 20090327
  Receipt Date: 20090321
  Transmission Date: 20090719
  Serious: Yes (Other)
  Sender: FDA-Public Use
  Company Number: PHHY2009SE10645

PATIENT
  Sex: Male

DRUGS (2)
  1. EXELON [Suspect]
     Dosage: 4.5 MG, UNK
  2. EXELON [Suspect]
     Route: 062

REACTIONS (4)
  - ANOREXIA [None]
  - MEMORY IMPAIRMENT [None]
  - NAUSEA [None]
  - WEIGHT DECREASED [None]
